FAERS Safety Report 4578560-X (Version None)
Quarter: 2005Q1

REPORT INFORMATION
  Report Type: 
  Country: None (occurrence: None)
  Receive Date: 20050204
  Receipt Date: 20050204
  Transmission Date: 20050727
  Serious: Yes (Other)
  Sender: FDA-Public Use
  Company Number: None

PATIENT
  Age: 74 Year
  Sex: Female

DRUGS (11)
  1. ROCEPHIN [Suspect]
     Indication: PNEUMONIA
     Dosage: 1 GRAM   Q24H   INTRAVENOU
     Route: 042
     Dates: start: 20041209, end: 20041215
  2. METHYLPREDNISOLONE [Concomitant]
  3. FLOVENT [Concomitant]
  4. METOPROLOL [Concomitant]
  5. FEMARA [Concomitant]
  6. VERAPAMIL [Concomitant]
  7. HYDRALAZINE [Concomitant]
  8. ACETAMINOPHEN [Concomitant]
  9. PHENERGAN WITH CODEINE SYRUP [Concomitant]
  10. FUROSEMIDE [Concomitant]
  11. ENALAPRIL [Concomitant]

REACTIONS (2)
  - RASH PRURITIC [None]
  - URTICARIA [None]
